FAERS Safety Report 15328090 (Version 4)
Quarter: 2019Q2

REPORT INFORMATION
  Report Type: Report from Study
  Country: US (occurrence: US)
  Receive Date: 20180828
  Receipt Date: 20190425
  Transmission Date: 20190711
  Serious: Yes (Other)
  Sender: FDA-Public Use
  Company Number: PHEH2018US035220

PATIENT
  Age: 41 Year
  Sex: Female

DRUGS (2)
  1. AFINITOR [Suspect]
     Active Substance: EVEROLIMUS
     Indication: ANGIOMYOLIPOMA
     Dosage: 10 MG, QD
     Route: 048
     Dates: start: 20180622
  2. AFINITOR [Suspect]
     Active Substance: EVEROLIMUS
     Dosage: 20 MG, UNK (20MG ALTERNATING WITH 10MG DOSE)
     Route: 048

REACTIONS (13)
  - Seizure [Unknown]
  - Fall [Unknown]
  - Alveolar osteitis [Unknown]
  - White blood cell count decreased [Unknown]
  - Swelling face [Unknown]
  - Malaise [Unknown]
  - Contusion [Unknown]
  - Vomiting [Unknown]
  - Haemorrhage [Unknown]
  - Oropharyngeal pain [Unknown]
  - Pain [Recovering/Resolving]
  - Tooth impacted [Unknown]
  - Pyrexia [Unknown]

NARRATIVE: CASE EVENT DATE: 20190317
